FAERS Safety Report 8544700-0 (Version None)
Quarter: 2012Q3

REPORT INFORMATION
  Report Type: 
  Country: None (occurrence: None)
  Receive Date: 20120727
  Receipt Date: 20120716
  Transmission Date: 20120928
  Serious: Yes (Life-Threatening, Hospitalization)
  Sender: FDA-Public Use
  Company Number: CH-BRISTOL-MYERS SQUIBB COMPANY-15507361

PATIENT
  Age: 66 Year
  Sex: Male
  Weight: 64 kg

DRUGS (12)
  1. PERENTEROL [Concomitant]
     Dosage: ENTERAL
  2. NOVASOURCE [Concomitant]
     Dosage: 1 DF = 500ML,120ML/H 1500ML OVER 12H,NOVASOURCE GI FORTE,ENTERAL
  3. REMERON [Concomitant]
     Dosage: ENTERAL
  4. ALDACTONE [Concomitant]
     Route: 042
     Dates: end: 20110120
  5. CONCOR [Concomitant]
     Dosage: ENTERAL
  6. LEVOTHYROXINE SODIUM [Concomitant]
  7. NEXIUM [Concomitant]
     Dosage: ENTERAL
  8. DIPIPERON [Concomitant]
     Dosage: PEG
  9. ERBITUX [Suspect]
     Indication: HYPOPHARYNGEAL CANCER
     Dosage: NO: OF INF-4 DOSE REDUCED TO 250MG/M2 LAST DOSE ON 13DEC10
     Route: 042
     Dates: start: 20101103, end: 20101203
  10. FRAGMIN [Concomitant]
     Route: 058
  11. CORDARONE [Concomitant]
     Dosage: ENTERAL
  12. ZESTRIL [Concomitant]
     Dosage: 0.5/DAY,ENTERAL

REACTIONS (8)
  - MUCOSAL INFLAMMATION [None]
  - PAIN [None]
  - STEVENS-JOHNSON SYNDROME [None]
  - PNEUMONIA ASPIRATION [None]
  - DYSPHAGIA [None]
  - TOXIC EPIDERMAL NECROLYSIS [None]
  - GENERAL PHYSICAL HEALTH DETERIORATION [None]
  - RASH MACULO-PAPULAR [None]
